FAERS Safety Report 5776710-0 (Version None)
Quarter: 2008Q2

REPORT INFORMATION
  Report Type: 
  Country: None (occurrence: None)
  Receive Date: 20080618
  Receipt Date: 20080307
  Transmission Date: 20081010
  Serious: No
  Sender: FDA-Public Use
  Company Number: US-ASTRAZENECA-2008UW04899

PATIENT
  Age: 11 Year
  Sex: Male

DRUGS (4)
  1. SYMBICORT [Suspect]
     Indication: ASTHMA
     Dosage: 80/4.5
     Route: 055
  2. PREVACID [Concomitant]
  3. DDAPV [Concomitant]
  4. XOPENEX [Concomitant]
     Indication: ASTHMA

REACTIONS (2)
  - DRUG INEFFECTIVE [None]
  - DYSPNOEA [None]
